FAERS Safety Report 13345278 (Version 1)
Quarter: 2017Q1

REPORT INFORMATION
  Report Type: Spontaneous
  Country: US (occurrence: US)
  Receive Date: 20170317
  Receipt Date: 20170317
  Transmission Date: 20170428
  Serious: No
  Sender: FDA-Public Use
  Company Number: US-BAYER-2017-051247

PATIENT
  Age: 84 Year
  Sex: Male
  Weight: 104 kg

DRUGS (3)
  1. MIRALAX [Suspect]
     Active Substance: POLYETHYLENE GLYCOL 3350
     Indication: GASTROINTESTINAL DISORDER
     Dosage: 1 DF, QD (1 DOSE ONCE DAILY)
     Route: 048
     Dates: start: 2015
  2. ATENOLOL. [Concomitant]
     Active Substance: ATENOLOL
  3. LIPITOR [Concomitant]
     Active Substance: ATORVASTATIN CALCIUM

REACTIONS (2)
  - Product use issue [Unknown]
  - Product use issue [Unknown]

NARRATIVE: CASE EVENT DATE: 2015
